FAERS Safety Report 9833844 (Version 1)
Quarter: 2014Q1

REPORT INFORMATION
  Report Type: Spontaneous
  Country: US (occurrence: US)
  Receive Date: 20140122
  Receipt Date: 20140122
  Transmission Date: 20141002
  Serious: No
  Sender: FDA-Public Use
  Company Number: US-BIOGENIDEC-2014BI005088

PATIENT
  Sex: Female

DRUGS (18)
  1. TECFIDERA [Suspect]
     Indication: MULTIPLE SCLEROSIS
     Route: 048
     Dates: start: 201309
  2. EVOXAC [Concomitant]
  3. WELLBUTRIN [Concomitant]
  4. ZOLOFT [Concomitant]
  5. SEROQUEL [Concomitant]
  6. SYNTHROID [Concomitant]
  7. ESTRADIOL [Concomitant]
  8. PROMETRIUM [Concomitant]
  9. NORVASC [Concomitant]
  10. CLONAZEPAM [Concomitant]
  11. AMBIEN [Concomitant]
  12. VITAMIN D [Concomitant]
  13. VITAMIN B12 [Concomitant]
  14. CALCIUM [Concomitant]
  15. MAGNESIUM [Concomitant]
  16. POTASSIUM [Concomitant]
  17. IBUPROFEN [Concomitant]
  18. PRILOSEC [Concomitant]

REACTIONS (6)
  - Gastrooesophageal reflux disease [Unknown]
  - Weight decreased [Unknown]
  - Stress [Unknown]
  - Erythema [Unknown]
  - Flushing [Unknown]
  - Diarrhoea [Unknown]
